FAERS Safety Report 5838033-0 (Version None)
Quarter: 2008Q3

REPORT INFORMATION
  Report Type: 
  Country: None (occurrence: None)
  Receive Date: 20080808
  Receipt Date: 20080317
  Transmission Date: 20090109
  Serious: No
  Sender: FDA-Public Use
  Company Number: A0715808A

PATIENT
  Age: 20 Year
  Sex: Female

DRUGS (1)
  1. PAXIL [Suspect]
     Dosage: 30MG PER DAY
     Route: 048
     Dates: start: 20070401, end: 20080307

REACTIONS (3)
  - ANXIETY [None]
  - DEPRESSION [None]
  - HEADACHE [None]
